FAERS Safety Report 21352754 (Version 1)
Quarter: 2022Q3

REPORT INFORMATION
  Report Type: Spontaneous
  Country: CN (occurrence: None)
  Receive Date: 20220920
  Receipt Date: 20220920
  Transmission Date: 20221027
  Serious: Yes (Other)
  Sender: FDA-Public Use
  Company Number: CN-ROCHE-3182120

PATIENT
  Age: 65 Year
  Sex: Female

DRUGS (21)
  1. AVASTIN [Suspect]
     Active Substance: BEVACIZUMAB
     Indication: Rectal adenocarcinoma
     Dosage: CAPECITABINE + BEVACIZUMAB + PEMBROLIZUMAB
     Route: 065
     Dates: start: 202006, end: 202007
  2. AVASTIN [Suspect]
     Active Substance: BEVACIZUMAB
     Dosage: XELOX (CAPECITABINE, OXALIPLATIN) + BEVACIZUMAB + PEMBROLIZUMAB
     Route: 065
     Dates: start: 202008, end: 202009
  3. CAPECITABINE [Concomitant]
     Active Substance: CAPECITABINE
     Indication: Rectal adenocarcinoma
     Dosage: CAPECITABINE + BEVACIZUMAB + PEMBROLIZUMAB
     Route: 048
     Dates: start: 202006, end: 202007
  4. CAPECITABINE [Concomitant]
     Active Substance: CAPECITABINE
     Dosage: XELOX (CAPECITABINE, OXALIPLATIN) + BEVACIZUMAB + PEMBROLIZUMAB
  5. CAPECITABINE [Concomitant]
     Active Substance: CAPECITABINE
     Dosage: XELOX (CAPECITABINE, OXALIPLATIN) + PEMBROLIZUMAB
  6. CAPECITABINE [Concomitant]
     Active Substance: CAPECITABINE
     Dosage: CAPECITABINE + PEMBROLIZUMAB
     Dates: start: 202011
  7. CAPECITABINE [Concomitant]
     Active Substance: CAPECITABINE
     Dosage: XELOX (CAPECITABINE, OXALIPLATIN) + PEMBROLIZUMAB
     Dates: start: 202012, end: 202102
  8. CAPECITABINE [Concomitant]
     Active Substance: CAPECITABINE
     Dosage: CAPECITABINE + REGORAFENIB + PEMBROLIZUMAB
     Dates: start: 202103, end: 202107
  9. CAPECITABINE [Concomitant]
     Active Substance: CAPECITABINE
     Dosage: CAPECITABINE + REGORAFENIB + PEMBROLIZUMAB
     Dates: start: 202110
  10. PEMBROLIZUMAB [Concomitant]
     Active Substance: PEMBROLIZUMAB
     Indication: Rectal adenocarcinoma
     Dosage: CAPECITABINE + BEVACIZUMAB + PEMBROLIZUMAB
     Dates: start: 202006, end: 202007
  11. PEMBROLIZUMAB [Concomitant]
     Active Substance: PEMBROLIZUMAB
     Dosage: XELOX (CAPECITABINE, OXALIPLATIN) + BEVACIZUMAB + PEMBROLIZUMAB
     Dates: start: 202008, end: 202009
  12. PEMBROLIZUMAB [Concomitant]
     Active Substance: PEMBROLIZUMAB
     Dosage: XELOX (CAPECITABINE, OXALIPLATIN) + PEMBROLIZUMAB
     Dates: start: 202010
  13. PEMBROLIZUMAB [Concomitant]
     Active Substance: PEMBROLIZUMAB
     Dosage: CAPECITABINE + PEMBROLIZUMAB
     Dates: start: 202011
  14. PEMBROLIZUMAB [Concomitant]
     Active Substance: PEMBROLIZUMAB
     Dosage: XELOX (CAPECITABINE, OXALIPLATIN) + PEMBROLIZUMAB
     Dates: start: 202012, end: 202102
  15. PEMBROLIZUMAB [Concomitant]
     Active Substance: PEMBROLIZUMAB
     Dosage: CAPECITABINE + REGORAFENIB + PEMBROLIZUMAB
     Dates: start: 202103, end: 202107
  16. PEMBROLIZUMAB [Concomitant]
     Active Substance: PEMBROLIZUMAB
     Dosage: CAPECITABINE + REGORAFENIB + PEMBROLIZUMAB
     Dates: start: 202110
  17. OXALIPLATIN [Concomitant]
     Active Substance: OXALIPLATIN
     Indication: Rectal adenocarcinoma
     Dosage: XELOX (CAPECITABINE, OXALIPLATIN) + BEVACIZUMAB + PEMBROLIZUMAB
     Dates: start: 202008, end: 202009
  18. OXALIPLATIN [Concomitant]
     Active Substance: OXALIPLATIN
     Dosage: XELOX (CAPECITABINE, OXALIPLATIN) + PEMBROLIZUMAB
     Dates: start: 202010
  19. OXALIPLATIN [Concomitant]
     Active Substance: OXALIPLATIN
     Dosage: XELOX (CAPECITABINE, OXALIPLATIN) + PEMBROLIZUMAB
     Dates: start: 202012, end: 202102
  20. REGORAFENIB [Concomitant]
     Active Substance: REGORAFENIB
     Indication: Rectal adenocarcinoma
     Dosage: CAPECITABINE + REGORAFENIB + PEMBROLIZUMAB
     Dates: start: 202103, end: 202107
  21. REGORAFENIB [Concomitant]
     Active Substance: REGORAFENIB
     Dosage: CAPECITABINE + REGORAFENIB + PEMBROLIZUMAB
     Dates: start: 202110

REACTIONS (1)
  - Myelosuppression [Unknown]
